FAERS Safety Report 25620785 (Version 1)
Quarter: 2025Q3

REPORT INFORMATION
  Report Type: Spontaneous
  Country: EU (occurrence: EU)
  Receive Date: 20250730
  Receipt Date: 20250730
  Transmission Date: 20251021
  Serious: Yes (Other)
  Sender: AUROBINDO
  Company Number: EU-PERRIGO-25PT008541

PATIENT
  Age: 81 Year
  Sex: Female

DRUGS (2)
  1. ASPIRIN [Suspect]
     Active Substance: ASPIRIN
     Indication: Product used for unknown indication
     Route: 065
  2. APIXABAN [Suspect]
     Active Substance: APIXABAN
     Indication: Product used for unknown indication
     Route: 065

REACTIONS (4)
  - Retinal aneurysm [Recovering/Resolving]
  - Retinal haemorrhage [Recovered/Resolved]
  - Visual acuity reduced [Recovering/Resolving]
  - Disruption of the photoreceptor inner segment-outer segment [Not Recovered/Not Resolved]
